FAERS Safety Report 10214979 (Version 1)
Quarter: 2014Q2

REPORT INFORMATION
  Report Type: Report from Study
  Country: DK (occurrence: DE)
  Receive Date: 20140603
  Receipt Date: 20140603
  Transmission Date: 20141212
  Serious: Yes (Other)
  Sender: FDA-Public Use
  Company Number: DE-FRI-1000067782

PATIENT
  Sex: Female

DRUGS (11)
  1. CITALOPRAM [Suspect]
     Dosage: 10 MG
     Route: 048
     Dates: start: 20121004, end: 20121018
  2. CITALOPRAM [Suspect]
     Dosage: 20 MG
     Route: 048
     Dates: start: 20121019, end: 20121030
  3. CITALOPRAM [Suspect]
     Dosage: 40 MG
     Route: 048
     Dates: start: 20121031, end: 20121106
  4. VALDOXAN [Suspect]
     Dosage: 25 MG
     Route: 048
     Dates: start: 20121021, end: 20121105
  5. OPIPRAMOL [Suspect]
     Dosage: 200 MG
     Route: 048
     Dates: start: 20121102, end: 20121106
  6. DIOVAN [Concomitant]
     Dosage: 160 MG
     Route: 048
  7. HCT [Concomitant]
     Dosage: 12.5 MG
     Route: 048
  8. GALVUS [Concomitant]
     Dosage: 100 MG
     Route: 048
  9. BISOPROLOL [Concomitant]
     Dosage: 2.5 MG
     Route: 048
  10. L-THYROXIN [Concomitant]
     Dosage: 150 MICROGRAMS
     Route: 048
  11. TORASEMID [Concomitant]
     Dosage: 10 MG
     Route: 048

REACTIONS (5)
  - Blood creatine phosphokinase increased [Recovered/Resolved]
  - Aspartate aminotransferase increased [Recovered/Resolved]
  - Alanine aminotransferase increased [Recovered/Resolved]
  - C-reactive protein increased [Unknown]
  - Blood creatinine increased [Recovering/Resolving]
